FAERS Safety Report 5430666-9 (Version None)
Quarter: 2007Q3

REPORT INFORMATION
  Report Type: 
  Country: None (occurrence: None)
  Receive Date: 20070830
  Receipt Date: 20070205
  Transmission Date: 20080115
  Serious: No
  Sender: FDA-Public Use
  Company Number: US-KINGPHARMUSA00001-K200700150

PATIENT

DRUGS (7)
  1. FLORINEF [Suspect]
     Indication: ORTHOSTATIC HYPERTENSION
     Dosage: .1 MG, TIW
     Route: 048
     Dates: start: 20060801, end: 20061101
  2. FLORINEF [Suspect]
     Dosage: .1 MG, QD
     Route: 048
     Dates: start: 20061101
  3. COPAXONE                           /01410902/ [Concomitant]
     Indication: MULTIPLE SCLEROSIS
     Route: 030
  4. VITAMIN C /00008001/ [Concomitant]
     Indication: MULTIPLE SCLEROSIS
     Route: 048
  5. VITAMIN CAP [Concomitant]
     Indication: MULTIPLE SCLEROSIS
     Route: 048
  6. SLOW-FE /00023503/ [Concomitant]
     Indication: MINERAL SUPPLEMENTATION
     Route: 048
  7. SELENIUM SULFIDE [Concomitant]
     Indication: MULTIPLE SCLEROSIS
     Route: 048

REACTIONS (3)
  - BLOOD PRESSURE FLUCTUATION [None]
  - FATIGUE [None]
  - HOT FLUSH [None]
